FAERS Safety Report 7910087-7 (Version None)
Quarter: 2011Q4

REPORT INFORMATION
  Report Type: 
  Country: None (occurrence: None)
  Receive Date: 20111111
  Receipt Date: 20111104
  Transmission Date: 20120403
  Serious: Yes (Hospitalization, Other)
  Sender: FDA-Public Use
  Company Number: US-ABBOTT-11P-163-0872686-00

PATIENT
  Sex: Female
  Weight: 77.18 kg

DRUGS (1)
  1. HUMIRA [Suspect]
     Indication: RHEUMATOID ARTHRITIS
     Route: 058
     Dates: start: 20100601, end: 20110904

REACTIONS (9)
  - VOLVULUS [None]
  - DIVERTICULUM [None]
  - INCISION SITE INFECTION [None]
  - GASTROINTESTINAL INFECTION [None]
  - ABDOMINAL PAIN LOWER [None]
  - INCISION SITE PAIN [None]
  - PYREXIA [None]
  - NAUSEA [None]
  - VOMITING [None]
